FAERS Safety Report 5093603-5 (Version None)
Quarter: 2006Q3

REPORT INFORMATION
  Report Type: 
  Country: None (occurrence: None)
  Receive Date: 20060829
  Receipt Date: 20060815
  Transmission Date: 20061208
  Serious: Yes (Hospitalization, Other)
  Sender: FDA-Public Use
  Company Number: MC200600188

PATIENT
  Age: 67 Year
  Sex: 0
  Weight: 102 kg

DRUGS (16)
  1. BIVALIRUDIN(BIVALIRUDIN) INJECTION [Suspect]
     Dosage: 75 MG, BOLUS, IV BOLUS 175 MG, HR
     Route: 040
     Dates: start: 20060110, end: 20060110
  2. BIVALIRUDIN(BIVALIRUDIN) INJECTION [Suspect]
     Dosage: 75 MG, BOLUS, IV BOLUS 175 MG, HR
     Route: 040
     Dates: start: 20060110, end: 20060110
  3. ASPIRIN [Concomitant]
  4. PLAVIX [Concomitant]
  5. CARDURA [Concomitant]
  6. HUMULIN R [Concomitant]
  7. LOPRESSOR [Concomitant]
  8. NORVASC [Concomitant]
  9. ZOCOR [Concomitant]
  10. HYDROCHLOROTHIAZIDE [Concomitant]
  11. RAMIPRIL [Concomitant]
  12. NPH INSULIN [Concomitant]
  13. LABETALOL HCL [Concomitant]
  14. NOVOLIN N (INSULIN INJECTION, ISOPHANE) [Concomitant]
  15. CLONIDINE [Concomitant]
  16. ROCEPHIN [Concomitant]

REACTIONS (21)
  - ACUTE MYOCARDIAL INFARCTION [None]
  - ANGINA UNSTABLE [None]
  - ASTHENIA [None]
  - BALANCE DISORDER [None]
  - BLOOD CREATINE PHOSPHOKINASE INCREASED [None]
  - BLOOD GLUCOSE DECREASED [None]
  - CHILLS [None]
  - DIABETIC END STAGE RENAL DISEASE [None]
  - DIABETIC NEUROPATHY [None]
  - DIZZINESS [None]
  - FALL [None]
  - FATIGUE [None]
  - HAEMATOCRIT DECREASED [None]
  - HAEMOGLOBIN DECREASED [None]
  - HIP FRACTURE [None]
  - LEUKOCYTOSIS [None]
  - PAIN IN EXTREMITY [None]
  - PROTHROMBIN TIME PROLONGED [None]
  - TREMOR [None]
  - URINARY TRACT INFECTION BACTERIAL [None]
  - VIRAL INFECTION [None]
